FAERS Safety Report 16636473 (Version 9)
Quarter: 2021Q1

REPORT INFORMATION
  Report Type: Spontaneous
  Country: US (occurrence: US)
  Receive Date: 20190726
  Receipt Date: 20210315
  Transmission Date: 20210419
  Serious: Yes (Other)
  Sender: FDA-Public Use
  Company Number: US-PFIZER INC-2019322613

PATIENT
  Age: 30 Year
  Sex: Female
  Weight: 50 kg

DRUGS (2)
  1. ELELYSO [Suspect]
     Active Substance: TALIGLUCERASE ALFA
     Dosage: 60 IU/KG
  2. ELELYSO [Suspect]
     Active Substance: TALIGLUCERASE ALFA
     Dosage: 3600 IU, UNK
     Dates: start: 20191204

REACTIONS (5)
  - Respiratory tract infection [Unknown]
  - Pain [Unknown]
  - Chitotriosidase increased [Unknown]
  - Weight increased [Unknown]
  - Irritability [Unknown]

NARRATIVE: CASE EVENT DATE: 2016
